FAERS Safety Report 16872073 (Version 1)
Quarter: 2019Q3

REPORT INFORMATION
  Report Type: Spontaneous
  Country: US (occurrence: US)
  Receive Date: 20190807
  Receipt Date: 20190807
  Transmission Date: 20191007
  Serious: Yes (Other)
  Sender: FDA-Public Use
  Company Number: None

PATIENT
  Age: 42 Year
  Sex: Female
  Weight: 58.06 kg

DRUGS (1)
  1. PROGESTERONE CAPSULE [Suspect]
     Active Substance: PROGESTERONE
     Indication: VAGINAL HAEMORRHAGE
     Route: 048
     Dates: start: 20130813, end: 20131120

REACTIONS (3)
  - Vaginal haemorrhage [None]
  - Hypersensitivity [None]
  - Condition aggravated [None]

NARRATIVE: CASE EVENT DATE: 20130813
